FAERS Safety Report 13460580 (Version 2)
Quarter: 2018Q3

REPORT INFORMATION
  Report Type: Spontaneous
  Country: US (occurrence: US)
  Receive Date: 20170420
  Receipt Date: 20180815
  Transmission Date: 20181010
  Serious: Yes (Hospitalization)
  Sender: FDA-Public Use
  Company Number: US-PFIZER INC-2017169418

PATIENT
  Age: 32 Year
  Sex: Male
  Weight: 59 kg

DRUGS (2)
  1. RAPAMUNE [Suspect]
     Active Substance: SIROLIMUS
     Indication: RENAL TRANSPLANT
     Dosage: 3 MG, DAILY (3 TABLETS PER DAY BY MOUTH)
     Route: 048
  2. RAPAMUNE [Suspect]
     Active Substance: SIROLIMUS
     Indication: PANCREAS TRANSPLANT

REACTIONS (7)
  - Blood creatinine abnormal [Recovering/Resolving]
  - Pyrexia [Recovered/Resolved]
  - Drug dose omission [Unknown]
  - Atypical pneumonia [Recovered/Resolved]
  - Product use in unapproved indication [Unknown]
  - Malaise [Unknown]
  - Urinary tract infection [Unknown]

NARRATIVE: CASE EVENT DATE: 20180707
